FAERS Safety Report 5223860-3 (Version None)
Quarter: 2007Q1

REPORT INFORMATION
  Report Type: 
  Country: None (occurrence: None)
  Receive Date: 20070130
  Receipt Date: 20070126
  Transmission Date: 20070707
  Serious: Yes (Hospitalization)
  Sender: FDA-Public Use
  Company Number: FR-BRISTOL-MYERS SQUIBB COMPANY-13642285

PATIENT
  Age: 53 Year
  Sex: Male

DRUGS (7)
  1. SUSTIVA [Suspect]
     Route: 048
     Dates: start: 20050401, end: 20061121
  2. KALETRA [Suspect]
     Route: 048
     Dates: start: 20050401, end: 20061121
  3. EMTRIVA [Suspect]
     Route: 048
     Dates: start: 20050401, end: 20061121
  4. ASPEGIC 1000 [Concomitant]
  5. TRIATEC [Concomitant]
  6. PLAVIX [Concomitant]
  7. SECTRAL [Concomitant]

REACTIONS (1)
  - MYOCARDIAL INFARCTION [None]
